FAERS Safety Report 9909160 (Version 1)
Quarter: 2014Q1

REPORT INFORMATION
  Report Type: Spontaneous
  Country: US (occurrence: None)
  Receive Date: 20140214
  Receipt Date: 20140214
  Transmission Date: 20141002
  Serious: No
  Sender: FDA-Public Use
  Company Number: None

PATIENT
  Age: 42 Year
  Sex: Male

DRUGS (3)
  1. ATENOLOL [Suspect]
     Dosage: 25   PO
     Route: 048
  2. KLONOPIN [Concomitant]
  3. TRILEPTAL [Concomitant]

REACTIONS (1)
  - Convulsion [None]
